FAERS Safety Report 23391451 (Version 2)
Quarter: 2024Q1

REPORT INFORMATION
  Report Type: Spontaneous
  Country: JP (occurrence: JP)
  Receive Date: 20240111
  Receipt Date: 20240204
  Transmission Date: 20240410
  Serious: Yes (Other)
  Sender: FDA-Public Use
  Company Number: JP-BEH-2024167128

PATIENT
  Age: 16 Year
  Sex: Male

DRUGS (4)
  1. FIBROGAMMIN P [Suspect]
     Active Substance: FACTOR XIII CONCENTRATE (HUMAN)
     Indication: Coagulation factor XIII level decreased
     Route: 065
  2. BERIPLAST P COMBI [Suspect]
     Active Substance: APROTININ\CALCIUM CHLORIDE\FIBRINOGEN HUMAN\FACTOR XIII CONCENTRATE (HUMAN)\THROMBIN
     Indication: Tissue sealing
     Route: 065
  3. POLYGLYCOLIC ACID [Concomitant]
     Active Substance: POLYGLYCOLIC ACID
     Indication: Tissue sealing
  4. OXIDIZED CELLULOSE [Concomitant]
     Indication: Tissue sealing

REACTIONS (5)
  - Pneumothorax [Recovered/Resolved]
  - Pneumothorax [Unknown]
  - Coagulation factor XIII level decreased [Unknown]
  - Coagulation factor XIII level decreased [Unknown]
  - Pleural adhesion [Unknown]
